FAERS Safety Report 8580578-7 (Version None)
Quarter: 2012Q3

REPORT INFORMATION
  Report Type: 
  Country: None (occurrence: None)
  Receive Date: 20120808
  Receipt Date: 20120731
  Transmission Date: 20120928
  Serious: Yes (Hospitalization, Other)
  Sender: FDA-Public Use
  Company Number: US-ABBOTT-12P-163-0962462-00

PATIENT
  Age: 53 Year
  Sex: Male

DRUGS (5)
  1. HUMIRA [Suspect]
     Indication: CROHN'S DISEASE
     Dates: start: 20120601
  2. CELEXA [Concomitant]
     Indication: DEPRESSION
     Route: 048
  3. HUMIRA [Suspect]
  4. PREDNISONE TAB [Suspect]
     Indication: CROHN'S DISEASE
  5. ANDROGEL [Concomitant]
     Indication: BLOOD TESTOSTERONE DECREASED

REACTIONS (5)
  - ERYTHEMA [None]
  - INFECTED BITES [None]
  - PAIN IN EXTREMITY [None]
  - OEDEMA PERIPHERAL [None]
  - STAPHYLOCOCCAL INFECTION [None]
